FAERS Safety Report 5623882-4 (Version None)
Quarter: 2008Q1

REPORT INFORMATION
  Report Type: 
  Country: None (occurrence: None)
  Receive Date: 20080207
  Receipt Date: 20080124
  Transmission Date: 20080703
  Serious: Yes (Death)
  Sender: FDA-Public Use
  Company Number: 8029541

PATIENT
  Age: 24 Month
  Sex: Female

DRUGS (4)
  1. KEPPRA [Suspect]
     Indication: CONVULSION
     Dates: start: 20050801
  2. KEPPRA [Suspect]
     Indication: NO THERAPEUTIC RESPONSE
     Dates: start: 20050801
  3. LUMINAL [Concomitant]
  4. VALPROIC ACID [Concomitant]

REACTIONS (1)
  - PNEUMONIA [None]
